FAERS Safety Report 9516888 (Version 1)
Quarter: 2013Q3

REPORT INFORMATION
  Report Type: Spontaneous
  Country: US (occurrence: US)
  Receive Date: 20130911
  Receipt Date: 20130911
  Transmission Date: 20140515
  Serious: Yes (Other)
  Sender: FDA-Public Use
  Company Number: US-BRISTOL-MYERS SQUIBB COMPANY-19354158

PATIENT
  Age: 65 Year
  Sex: Male
  Weight: 127.89 kg

DRUGS (1)
  1. ELIQUIS [Suspect]
     Indication: ATRIAL FIBRILLATION

REACTIONS (3)
  - Basal cell carcinoma [Unknown]
  - Arthritis [Unknown]
  - Memory impairment [Unknown]
